FAERS Safety Report 10053025 (Version 1)
Quarter: 2014Q2

REPORT INFORMATION
  Report Type: Spontaneous
  Country: FR (occurrence: FR)
  Receive Date: 20140402
  Receipt Date: 20140402
  Transmission Date: 20141212
  Serious: Yes (Hospitalization)
  Sender: FDA-Public Use
  Company Number: FR-PFIZER INC-2014092002

PATIENT
  Age: 66 Year
  Sex: Male

DRUGS (7)
  1. CORDARONE [Suspect]
     Indication: TACHYARRHYTHMIA
     Dosage: 200 MG, UNK
     Route: 048
     Dates: start: 20131010, end: 20140122
  2. PREDNISOLONE [Concomitant]
     Dosage: UNK
  3. MYCOPHENOLATE MOFETIL [Concomitant]
     Dosage: UNK
  4. VFEND [Concomitant]
     Dosage: UNK
  5. TARGOCID [Concomitant]
     Dosage: UNK
  6. TAVANIC [Concomitant]
     Dosage: UNK
  7. REBETOL [Concomitant]
     Dosage: UNK

REACTIONS (2)
  - Hyperthyroidism [Recovering/Resolving]
  - Respiratory syncytial virus infection [Unknown]
